FAERS Safety Report 4408840-X (Version None)
Quarter: 2004Q3

REPORT INFORMATION
  Report Type: 
  Country: None (occurrence: None)
  Receive Date: 20040722
  Receipt Date: 20040707
  Transmission Date: 20050211
  Serious: Yes (Hospitalization)
  Sender: FDA-Public Use
  Company Number: 201002

PATIENT
  Age: 51 Year
  Sex: Female

DRUGS (5)
  1. AVONEX [Suspect]
     Indication: MULTIPLE SCLEROSIS
     Dosage: 30 MCG QW IM
     Route: 030
     Dates: start: 19990101, end: 20040101
  2. AVONEX [Suspect]
     Indication: MULTIPLE SCLEROSIS
     Dosage: 30 MCG QW IM
     Route: 030
     Dates: start: 20040101
  3. SYNTHROID [Concomitant]
  4. SEROQUEL [Concomitant]
  5. KEPPRA [Concomitant]

REACTIONS (10)
  - ANKLE FRACTURE [None]
  - CONTUSION [None]
  - FAECAL INCONTINENCE [None]
  - LOSS OF CONSCIOUSNESS [None]
  - LOWER LIMB FRACTURE [None]
  - MIGRAINE [None]
  - MUSCLE SPASMS [None]
  - ROAD TRAFFIC ACCIDENT [None]
  - THERMAL BURN [None]
  - VISUAL DISTURBANCE [None]
